FAERS Safety Report 7681417-9 (Version None)
Quarter: 2011Q3

REPORT INFORMATION
  Report Type: 
  Country: None (occurrence: None)
  Receive Date: 20110808
  Receipt Date: 20110728
  Transmission Date: 20111222
  Serious: Yes (Hospitalization, Other)
  Sender: FDA-Public Use
  Company Number: WAES 1107USA03635

PATIENT
  Age: 44 Year
  Sex: Female
  Weight: 80.2867 kg

DRUGS (4)
  1. LORAZEPAM [Concomitant]
  2. DECADRON [Suspect]
     Indication: METASTASES TO CENTRAL NERVOUS SYSTEM
     Dosage: 4 MG/PO
     Route: 048
     Dates: start: 20101104, end: 20110319
  3. COMPAZINE [Concomitant]
  4. FUROSEMIDE [Concomitant]

REACTIONS (6)
  - ANAEMIA [None]
  - CEREBRAL HAEMORRHAGE [None]
  - RETINAL HAEMORRHAGE [None]
  - HERPES ZOSTER [None]
  - PULMONARY EMBOLISM [None]
  - DEEP VEIN THROMBOSIS [None]
